FAERS Safety Report 6293507-6 (Version None)
Quarter: 2009Q3

REPORT INFORMATION
  Report Type: 
  Country: None (occurrence: None)
  Receive Date: 20090803
  Receipt Date: 20090721
  Transmission Date: 20100115
  Serious: Yes (Death, Hospitalization, Other)
  Sender: FDA-Public Use
  Company Number: ES-RANBAXY-2009RR-25846

PATIENT
  Age: 63 Year
  Sex: Male

DRUGS (3)
  1. NAPROXEN [Suspect]
     Dosage: 500 MG, TID
  2. LEVOFLOXACIN [Suspect]
     Dosage: 500 MG, BID
  3. DOXYCYCLINE [Suspect]
     Dosage: 100 MG, BID

REACTIONS (5)
  - COAGULOPATHY [None]
  - ENCEPHALOPATHY [None]
  - HEPATITIS [None]
  - HYPERBILIRUBINAEMIA [None]
  - RENAL FAILURE [None]
